FAERS Safety Report 21599615 (Version 1)
Quarter: 2022Q4

REPORT INFORMATION
  Report Type: Spontaneous
  Country: US (occurrence: None)
  Receive Date: 20221115
  Receipt Date: 20221115
  Transmission Date: 20230113
  Serious: Yes (Hospitalization)
  Sender: FDA-Public Use
  Company Number: None

PATIENT
  Age: 74 Year
  Sex: Female
  Weight: 97.52 kg

DRUGS (32)
  1. NEULASTA [Suspect]
     Active Substance: PEGFILGRASTIM
     Indication: Breast cancer female
     Dosage: 6MG Q21DAYS SUBCUTANEOUSY?
     Route: 058
  2. AMLODIPINE [Concomitant]
     Active Substance: AMLODIPINE BESYLATE
  3. ASPIRIN [Concomitant]
     Active Substance: ASPIRIN
  4. ATENOLOL [Concomitant]
     Active Substance: ATENOLOL
  5. ATORVASTATIN [Concomitant]
     Active Substance: ATORVASTATIN
  6. BONIVA [Concomitant]
     Active Substance: IBANDRONATE SODIUM
  7. CALCIUM [Concomitant]
     Active Substance: CALCIUM
  8. GLOBETASOL [Concomitant]
  9. CYCLOBENZAPRINE [Concomitant]
     Active Substance: CYCLOBENZAPRINE
  10. DENTAGEL [Concomitant]
     Active Substance: SODIUM FLUORIDE
  11. DIAZEPAM [Concomitant]
     Active Substance: DIAZEPAM
  12. DULOXETINE [Concomitant]
     Active Substance: DULOXETINE
  13. FENTANYL [Concomitant]
     Active Substance: FENTANYL
  14. FROVATRIPTAN [Concomitant]
     Active Substance: FROVATRIPTAN
  15. FUROSEMIDE [Concomitant]
     Active Substance: FUROSEMIDE
  16. GENTESA [Concomitant]
  17. HYDROXYZINE [Concomitant]
     Active Substance: HYDROXYZINE HYDROCHLORIDE
  18. LANSOPRAZOLE [Concomitant]
     Active Substance: LANSOPRAZOLE
  19. LANTUS [Concomitant]
     Active Substance: INSULIN GLARGINE
  20. LIDOCAINE\PRILOCAINE [Concomitant]
     Active Substance: LIDOCAINE\PRILOCAINE
  21. LINZESS [Concomitant]
     Active Substance: LINACLOTIDE
  22. LISINOPRIL [Concomitant]
     Active Substance: LISINOPRIL
  23. METOCLOPRAMIDE [Concomitant]
     Active Substance: METOCLOPRAMIDE
  24. VITAMINS [Concomitant]
     Active Substance: VITAMINS
  25. OMEPRAZOLE [Concomitant]
     Active Substance: OMEPRAZOLE
  26. OXYCODONE [Concomitant]
     Active Substance: OXYCODONE
  27. PROMETHAZINE [Concomitant]
     Active Substance: PROMETHAZINE HYDROCHLORIDE
  28. REPAGLINIDE [Concomitant]
     Active Substance: REPAGLINIDE
  29. TRAZODONE [Concomitant]
     Active Substance: TRAZODONE HYDROCHLORIDE
  30. VENLAFAXINE [Concomitant]
     Active Substance: VENLAFAXINE HYDROCHLORIDE
  31. VITAMIN D [Concomitant]
     Active Substance: VITAMIN D NOS
  32. ZOLPIDEM [Concomitant]
     Active Substance: ZOLPIDEM TARTRATE

REACTIONS (1)
  - Nonspecific reaction [None]
